FAERS Safety Report 6956189-3 (Version None)
Quarter: 2010Q3

REPORT INFORMATION
  Report Type: 
  Country: None (occurrence: None)
  Receive Date: 20100830
  Receipt Date: 20100823
  Transmission Date: 20110219
  Serious: Yes (Life-Threatening, Hospitalization, Other)
  Sender: FDA-Public Use
  Company Number: PHHY2010US45773

PATIENT
  Sex: Female

DRUGS (12)
  1. DIOVAN [Suspect]
     Dosage: UNK
     Dates: start: 20060101, end: 20070101
  2. EXFORGE [Suspect]
     Dosage: 5/320 MG
  3. COREG [Concomitant]
  4. ASPIRIN [Concomitant]
     Dosage: 81 MG
  5. NEXIUM [Concomitant]
  6. TOPRAL [Concomitant]
     Dosage: 1 PILL
  7. TOPRAL [Concomitant]
     Dosage: ONE AND HALF PILL
  8. LIDODERM [Concomitant]
  9. FLEXERIL [Concomitant]
  10. PRAVASTATIN [Concomitant]
     Indication: BLOOD CHOLESTEROL
  11. FOSAMAX [Concomitant]
  12. ANTIBIOTICS [Concomitant]

REACTIONS (32)
  - ABDOMINAL DISCOMFORT [None]
  - ANGINA PECTORIS [None]
  - AUTOIMMUNE DISORDER [None]
  - BLADDER DISORDER [None]
  - BLADDER INJURY [None]
  - BLOOD CHOLESTEROL INCREASED [None]
  - BLOOD PRESSURE INCREASED [None]
  - BODY TEMPERATURE FLUCTUATION [None]
  - CEREBROVASCULAR ACCIDENT [None]
  - CHEST PAIN [None]
  - CYANOSIS [None]
  - DRUG DOSE OMISSION [None]
  - DRUG INEFFECTIVE [None]
  - FEELING ABNORMAL [None]
  - FIBROMYALGIA [None]
  - GASTROOESOPHAGEAL REFLUX DISEASE [None]
  - HYPERSENSITIVITY [None]
  - INFLAMMATION [None]
  - MALAISE [None]
  - MEMORY IMPAIRMENT [None]
  - MOVEMENT DISORDER [None]
  - OEDEMA PERIPHERAL [None]
  - OESOPHAGEAL ULCER HAEMORRHAGE [None]
  - OVERDOSE [None]
  - PAIN [None]
  - PANIC ATTACK [None]
  - PHARYNGEAL HAEMORRHAGE [None]
  - POLLAKIURIA [None]
  - RASH [None]
  - TRANSIENT ISCHAEMIC ATTACK [None]
  - ULCER HAEMORRHAGE [None]
  - URTICARIA [None]
